FAERS Safety Report 4349359-4 (Version None)
Quarter: 2004Q2

REPORT INFORMATION
  Report Type: 
  Country: None (occurrence: None)
  Receive Date: 20040426
  Receipt Date: 20040420
  Transmission Date: 20050107
  Serious: Yes (Hospitalization)
  Sender: FDA-Public Use
  Company Number: DE-JNJFOC-20040404515

PATIENT
  Age: 55 Year
  Sex: Female

DRUGS (12)
  1. HALDOL [Suspect]
     Dosage: 2 MG
     Dates: start: 20000424
  2. TRUXAL (CHLORPROTHIXENE HYDROCHLORIDE) [Suspect]
     Dosage: SEE IMAGE
     Dates: start: 20000615, end: 20000616
  3. TRUXAL (CHLORPROTHIXENE HYDROCHLORIDE) [Suspect]
     Dosage: SEE IMAGE
     Dates: start: 20000617, end: 20000622
  4. TRUXAL (CHLORPROTHIXENE HYDROCHLORIDE) [Suspect]
     Dosage: SEE IMAGE
     Dates: start: 20000623, end: 20000626
  5. RAMIPRIL [Suspect]
     Dosage: SEE IMAGE
     Dates: end: 20000622
  6. RAMIPRIL [Suspect]
     Dosage: SEE IMAGE
     Dates: start: 20000623, end: 20000626
  7. DYTIDE H (DYAZIDE) TABLETS [Suspect]
     Dosage: 0.5 DOSE (S)
     Dates: end: 20000627
  8. LASIX [Suspect]
     Dosage: 40 MG
     Dates: start: 20000627
  9. CLOZAPINE [Suspect]
     Dosage: SEE IMAGE
     Dates: start: 19971201, end: 19980101
  10. CLOZAPINE [Suspect]
     Dosage: SEE IMAGE
     Dates: start: 20000517, end: 20000616
  11. CLOZAPINE [Suspect]
     Dosage: SEE IMAGE
     Dates: start: 20000617
  12. EFFORTIL (DROPS) ETILEFRINE HYDROCHLORIDE [Concomitant]

REACTIONS (5)
  - CONTUSION [None]
  - ELECTROCARDIOGRAM ST SEGMENT DEPRESSION [None]
  - SYNCOPE [None]
  - VENTRICULAR HYPERTROPHY [None]
  - VERTIGO POSITIONAL [None]
